FAERS Safety Report 15022384 (Version 2)
Quarter: 2018Q2

REPORT INFORMATION
  Report Type: Report from Study
  Country: IE (occurrence: IE)
  Receive Date: 20180618
  Receipt Date: 20180619
  Transmission Date: 20180711
  Serious: Yes (Death, Hospitalization, Other)
  Sender: FDA-Public Use
  Company Number: IE-AMGEN-IRLSL2018079822

PATIENT
  Age: 91 Year
  Sex: Male

DRUGS (8)
  1. NEBIMEL [Concomitant]
     Dosage: 5 MG, QD
     Route: 050
  2. ASPIRINE [Concomitant]
     Active Substance: ASPIRIN
     Dosage: 75 MG, QD
     Route: 050
  3. BUMETANIDE. [Concomitant]
     Active Substance: BUMETANIDE
     Dosage: 1 MG, QD
     Route: 050
  4. URSOFALK [Concomitant]
     Active Substance: URSODIOL
     Dosage: 250 MG, QD
     Route: 050
  5. PANTOPRAZOLE [Concomitant]
     Active Substance: PANTOPRAZOLE
     Dosage: 40 MG, QD
     Route: 050
  6. TAMNEXYL [Concomitant]
     Dosage: 400 MG, QD
     Route: 050
  7. ARANESP [Suspect]
     Active Substance: DARBEPOETIN ALFA
     Indication: CHRONIC KIDNEY DISEASE
     Dosage: 30 MCG, Q2WK
     Route: 058
     Dates: start: 201712
  8. ATORVASTATIN [Concomitant]
     Active Substance: ATORVASTATIN
     Dosage: 40 MG, QD
     Route: 050

REACTIONS (3)
  - Pharyngeal ulceration [Unknown]
  - Mouth ulceration [Unknown]
  - Death [Fatal]

NARRATIVE: CASE EVENT DATE: 20180611
